FAERS Safety Report 7547203-5 (Version None)
Quarter: 2011Q2

REPORT INFORMATION
  Report Type: 
  Country: None (occurrence: None)
  Receive Date: 20110614
  Receipt Date: 20110613
  Transmission Date: 20111010
  Serious: Yes (Hospitalization)
  Sender: FDA-Public Use
  Company Number: US-UCBSA-035236

PATIENT
  Sex: Male

DRUGS (1)
  1. CIMZIA [Suspect]
     Indication: CROHN'S DISEASE
     Route: 058
     Dates: start: 20101206, end: 20110609

REACTIONS (5)
  - SURGERY [None]
  - MALAISE [None]
  - CROHN'S DISEASE [None]
  - WEIGHT DECREASED [None]
  - ASTHENIA [None]
